FAERS Safety Report 13891364 (Version 1)
Quarter: 2017Q3

REPORT INFORMATION
  Report Type: Spontaneous
  Country: US (occurrence: US)
  Receive Date: 20170822
  Receipt Date: 20170822
  Transmission Date: 20171127
  Serious: No
  Sender: FDA-Public Use
  Company Number: US-LEXICON PHARMACEUTICALS, INC-17-1606-00683

PATIENT
  Age: 68 Year
  Sex: Female

DRUGS (11)
  1. SANDOSTATIN [Concomitant]
     Active Substance: OCTREOTIDE ACETATE
  2. AMLODIPINE [Concomitant]
     Active Substance: AMLODIPINE BESYLATE
  3. DULOXETINE. [Concomitant]
     Active Substance: DULOXETINE
  4. AMBIEN [Concomitant]
     Active Substance: ZOLPIDEM TARTRATE
  5. METHADONE [Concomitant]
     Active Substance: METHADONE HYDROCHLORIDE
  6. TELOTRISTAT ETHYL [Suspect]
     Active Substance: TELOTRISTAT ETHYL
     Indication: CARCINOID SYNDROME
     Route: 048
     Dates: start: 20170605
  7. LEVEMIR [Concomitant]
     Active Substance: INSULIN DETEMIR
  8. FUROSEMIDE. [Concomitant]
     Active Substance: FUROSEMIDE
  9. METFORMIN [Concomitant]
     Active Substance: METFORMIN HYDROCHLORIDE
  10. FERROUS SULFATE. [Concomitant]
     Active Substance: FERROUS SULFATE
  11. VICTOZA [Concomitant]
     Active Substance: LIRAGLUTIDE

REACTIONS (1)
  - Diarrhoea [Unknown]

NARRATIVE: CASE EVENT DATE: 20170723
